FAERS Safety Report 11456815 (Version 1)
Quarter: 2015Q3

REPORT INFORMATION
  Report Type: Spontaneous
  Country: US (occurrence: US)
  Receive Date: 20150903
  Receipt Date: 20150903
  Transmission Date: 20151125
  Serious: No
  Sender: FDA-Public Use
  Company Number: PHEH2015US017042

PATIENT
  Age: 8 Year
  Sex: Female

DRUGS (1)
  1. EXJADE [Suspect]
     Active Substance: DEFERASIROX
     Indication: CONGENITAL APLASTIC ANAEMIA
     Dosage: 500 MG (21MG/KG)
     Route: 065

REACTIONS (1)
  - Rash [Unknown]
